FAERS Safety Report 5562643-1 (Version None)
Quarter: 2007Q4

REPORT INFORMATION
  Report Type: 
  Country: None (occurrence: None)
  Receive Date: 20071217
  Receipt Date: 20071211
  Transmission Date: 20080405
  Serious: Yes (Death, Hospitalization)
  Sender: FDA-Public Use
  Company Number: FR-BRISTOL-MYERS SQUIBB COMPANY-14013296

PATIENT
  Age: 77 Year
  Sex: Female

DRUGS (2)
  1. CEFEPIME [Suspect]
  2. AMOXICILLIN + CLAVULANATE POTASSIUM [Suspect]
     Indication: ULCER

REACTIONS (2)
  - ENCEPHALOPATHY [None]
  - SEPSIS [None]
